FAERS Safety Report 9495728 (Version 2)
Quarter: 2013Q3

REPORT INFORMATION
  Report Type: Spontaneous
  Country: DK (occurrence: DK)
  Receive Date: 20130903
  Receipt Date: 20130903
  Transmission Date: 20140515
  Serious: Yes (Hospitalization)
  Sender: FDA-Public Use
  Company Number: DK-CELGENEUS-044-21660-13072046

PATIENT
  Age: 57 Year
  Sex: Female

DRUGS (5)
  1. ABRAXANE [Suspect]
     Indication: OVARIAN CANCER
     Route: 041
     Dates: start: 20130516
  2. CARBOPLATIN [Suspect]
     Indication: OVARIAN CANCER
     Route: 041
     Dates: start: 20130516
  3. METOPIMAZINE [Suspect]
     Indication: ANTIEMETIC SUPPORTIVE CARE
     Route: 065
  4. BEVACIZUMAB [Suspect]
     Indication: OVARIAN CANCER
     Route: 041
     Dates: start: 20130516
  5. ENALAPRIL MALEATE [Concomitant]
     Indication: PRODUCT USED FOR UNKNOWN INDICATION
     Route: 048

REACTIONS (2)
  - Hyponatraemia [Recovering/Resolving]
  - Dizziness [Recovering/Resolving]
